FAERS Safety Report 9275187 (Version 4)
Quarter: 2014Q1

REPORT INFORMATION
  Report Type: Report from Study
  Country: CA (occurrence: CA)
  Receive Date: 20130507
  Receipt Date: 20140328
  Transmission Date: 20141002
  Serious: Yes (Hospitalization, Other)
  Sender: FDA-Public Use
  Company Number: CA-JNJFOC-20130416185

PATIENT
  Age: 53 Year
  Sex: Male
  Weight: 65.32 kg

DRUGS (4)
  1. REMICADE [Suspect]
     Indication: CROHN^S DISEASE
     Route: 042
     Dates: start: 20130826
  2. REMICADE [Suspect]
     Indication: CROHN^S DISEASE
     Dosage: RESTARTED AFTER THE EVENT
     Route: 042
  3. REMICADE [Suspect]
     Indication: CROHN^S DISEASE
     Dosage: FOR 4 YEARS
     Route: 042
     Dates: start: 20090430
  4. IMURAN [Concomitant]
     Route: 048
     Dates: start: 2009

REACTIONS (2)
  - Small intestinal resection [Recovering/Resolving]
  - Neoplasm malignant [Recovering/Resolving]
